FAERS Safety Report 13239715 (Version 2)
Quarter: 2017Q1

REPORT INFORMATION
  Report Type: Spontaneous
  Country: US (occurrence: US)
  Receive Date: 20170216
  Receipt Date: 20170227
  Transmission Date: 20170428
  Serious: No
  Sender: FDA-Public Use
  Company Number: US-PFIZER INC-2017059270

PATIENT
  Age: 24 Year
  Sex: Male

DRUGS (2)
  1. SUTENT [Suspect]
     Active Substance: SUNITINIB MALATE
     Indication: METASTATIC RENAL CELL CARCINOMA
     Dosage: 50 MG, CYCLIC (TAKE 1 CAPSULE BY MOUTH DAILY FOR 4 WEEKS ON AND 2 WEEKS OFF)
     Route: 048
     Dates: start: 20170119
  2. SUTENT [Suspect]
     Active Substance: SUNITINIB MALATE
     Dosage: 50 MG, CYCLIC (DAILY FOR 28 DAYS ON AND 14 DAYS OFF)
     Dates: start: 20170120

REACTIONS (1)
  - Nausea [Unknown]
